FAERS Safety Report 22089227 (Version 1)
Quarter: 2023Q1

REPORT INFORMATION
  Report Type: Spontaneous
  Country: GB (occurrence: GB)
  Receive Date: 20230313
  Receipt Date: 20230313
  Transmission Date: 20230418
  Serious: Yes (Hospitalization)
  Sender: FDA-Public Use
  Company Number: GB-MHRA-MED-202303071438162390-ZCBGK

PATIENT
  Age: 74 Year
  Sex: Male

DRUGS (1)
  1. FAMOTIDINE [Suspect]
     Active Substance: FAMOTIDINE
     Indication: Product used for unknown indication
     Dosage: 40 MILLIGRAM, QD (40MG ONCE A DAY IN THE MORNING)
     Route: 065

REACTIONS (3)
  - Liver injury [Recovering/Resolving]
  - Renal injury [Recovering/Resolving]
  - Heart rate irregular [Not Recovered/Not Resolved]
